FAERS Safety Report 6944514-9 (Version None)
Quarter: 2010Q3

REPORT INFORMATION
  Report Type: 
  Country: None (occurrence: None)
  Receive Date: 20100827
  Receipt Date: 20100817
  Transmission Date: 20110219
  Serious: Yes (Other)
  Sender: FDA-Public Use
  Company Number: GB-PFIZER INC-2010085096

PATIENT
  Age: 36 Year
  Sex: Female

DRUGS (2)
  1. DEPO-PROVERA [Suspect]
     Indication: CONTRACEPTION
     Dosage: 150 MG, EVERY 3 MONTHS
     Route: 030
  2. TERBINAFINE [Interacting]
     Indication: ONYCHOMYCOSIS
     Dosage: 250 MG, 1X/DAY
     Route: 048
     Dates: start: 20100629, end: 20100701

REACTIONS (2)
  - DRUG INTERACTION [None]
  - METRORRHAGIA [None]
